FAERS Safety Report 8423046-5 (Version None)
Quarter: 2012Q2

REPORT INFORMATION
  Report Type: 
  Country: None (occurrence: None)
  Receive Date: 20120608
  Receipt Date: 20120530
  Transmission Date: 20120825
  Serious: Yes (Hospitalization)
  Sender: FDA-Public Use
  Company Number: CA-JNJFOC-20120521365

PATIENT
  Sex: Male
  Weight: 97.52 kg

DRUGS (2)
  1. REMICADE [Suspect]
     Dosage: 10 VIALS
     Route: 042
  2. REMICADE [Suspect]
     Indication: COLITIS ULCERATIVE
     Dosage: 5 VIALS
     Route: 042

REACTIONS (3)
  - WEIGHT DECREASED [None]
  - PAIN IN EXTREMITY [None]
  - COLITIS ULCERATIVE [None]
